FAERS Safety Report 5115013-4 (Version None)
Quarter: 2006Q3

REPORT INFORMATION
  Report Type: 
  Country: None (occurrence: None)
  Receive Date: 20060925
  Receipt Date: 20060925
  Transmission Date: 20061208
  Serious: No
  Sender: FDA-Public Use
  Company Number: None

PATIENT
  Age: 66 Year
  Weight: 146.2 kg

DRUGS (2)
  1. FLUDARABINE [Suspect]
     Indication: CHRONIC LYMPHOCYTIC LEUKAEMIA
     Dosage: 44 MG X 3 DAYS IV
     Route: 042
     Dates: start: 20060811, end: 20060813
  2. CYTOXAN [Suspect]
     Indication: CHRONIC LYMPHOCYTIC LEUKAEMIA
     Dosage: 440 MG X 3 DAYS IV
     Route: 042
     Dates: start: 20060811, end: 20060813

REACTIONS (1)
  - HAEMOGLOBIN DECREASED [None]
